FAERS Safety Report 10265798 (Version 2)
Quarter: 2014Q3

REPORT INFORMATION
  Report Type: Spontaneous
  Country: US (occurrence: US)
  Receive Date: 20140627
  Receipt Date: 20140714
  Transmission Date: 20150326
  Serious: Yes (Hospitalization)
  Sender: FDA-Public Use
  Company Number: US-GLAXOSMITHKLINE-A1078079A

PATIENT
  Age: 75 Year
  Sex: Male

DRUGS (4)
  1. OXYGEN. [Concomitant]
     Active Substance: OXYGEN
  2. SEREVENT [Suspect]
     Active Substance: SALMETEROL XINAFOATE
     Indication: CHRONIC OBSTRUCTIVE PULMONARY DISEASE
     Dosage: 1PUFF TWICE PER DAY
     Route: 055
     Dates: start: 2011, end: 2012
  3. FOSAMAX [Concomitant]
     Active Substance: ALENDRONATE SODIUM
  4. ADVAIR HFA [Suspect]
     Active Substance: FLUTICASONE PROPIONATE\SALMETEROL XINAFOATE
     Indication: CHRONIC OBSTRUCTIVE PULMONARY DISEASE
     Dosage: 1PUFF TWICE PER DAY
     Route: 055
     Dates: start: 2000

REACTIONS (11)
  - Body height decreased [Unknown]
  - Hypoxia [Unknown]
  - Dyspnoea [Unknown]
  - Lung neoplasm malignant [Unknown]
  - Oxygen supplementation [Unknown]
  - Ill-defined disorder [Unknown]
  - Bronchopulmonary aspergillosis [Not Recovered/Not Resolved]
  - Osteoporosis [Unknown]
  - Pneumonia bacterial [Recovered/Resolved]
  - Bronchial disorder [Unknown]
  - Bronchitis [Unknown]

NARRATIVE: CASE EVENT DATE: 2007
